FAERS Safety Report 6412287-4 (Version None)
Quarter: 2009Q4

REPORT INFORMATION
  Report Type: 
  Country: None (occurrence: None)
  Receive Date: 20091020
  Receipt Date: 20091007
  Transmission Date: 20100525
  Serious: Yes (Hospitalization)
  Sender: FDA-Public Use
  Company Number: 2009AC000148

PATIENT
  Age: 69 Year
  Sex: Female

DRUGS (25)
  1. DIGOXIN [Suspect]
     Dosage: 0.25 MG; QD; PO 0.125 MG; UNKNOWN; PO
     Route: 048
  2. TARKA [Concomitant]
  3. VOLTAREN-XR [Concomitant]
  4. METOPROLOL TARTRATE [Concomitant]
  5. LESCOL [Concomitant]
  6. NAPROSYN [Concomitant]
  7. VERAPMIL [Concomitant]
  8. CALAN [Concomitant]
  9. NASONEX [Concomitant]
  10. BACTRIM [Concomitant]
  11. CIPRO [Concomitant]
  12. VICODIN [Concomitant]
  13. DIFLUCAN [Concomitant]
  14. TRIAMCINOLONE [Concomitant]
  15. CLOBETASOL PROPIONATE [Concomitant]
  16. FELDENE [Concomitant]
  17. PREVACID [Concomitant]
  18. AMOXICILLIN [Concomitant]
  19. KLOR-CON [Concomitant]
  20. LISINOPRIL [Concomitant]
  21. SIMVASTATIN [Concomitant]
  22. HYDROCHLOROTHIAZIDE [Concomitant]
  23. PIROXICAM [Concomitant]
  24. WARFARIN SODIUM [Concomitant]
  25. OXYBUTYNIN CL [Concomitant]

REACTIONS (9)
  - ATRIAL FIBRILLATION [None]
  - DIZZINESS [None]
  - DYSPNOEA EXERTIONAL [None]
  - HYPERCHOLESTEROLAEMIA [None]
  - HYPERTENSION [None]
  - HYPOKALAEMIA [None]
  - MULTIPLE INJURIES [None]
  - NAUSEA [None]
  - SINUS BRADYCARDIA [None]
